FAERS Safety Report 4744940-2 (Version None)
Quarter: 2005Q3

REPORT INFORMATION
  Report Type: 
  Country: None (occurrence: None)
  Receive Date: 20050815
  Receipt Date: 20050711
  Transmission Date: 20060218
  Serious: Yes (Hospitalization)
  Sender: FDA-Public Use
  Company Number: US-MERCK-0507USA01514

PATIENT
  Age: 50 Year
  Sex: Female

DRUGS (6)
  1. VIOXX [Suspect]
     Indication: ARTHRITIS
     Route: 048
     Dates: start: 20040101, end: 20040101
  2. LOTREL [Concomitant]
     Route: 065
  3. LESCOL [Concomitant]
     Route: 065
  4. ZYPREXA [Concomitant]
     Route: 065
  5. MERALOP [Concomitant]
     Route: 065
  6. FLONASE [Concomitant]
     Route: 065

REACTIONS (5)
  - ANGINA PECTORIS [None]
  - ARTHRITIS [None]
  - CEREBROVASCULAR ACCIDENT [None]
  - CHEST PAIN [None]
  - MYOCARDIAL INFARCTION [None]
